FAERS Safety Report 10049568 (Version 1)
Quarter: 2014Q1

REPORT INFORMATION
  Report Type: Spontaneous
  Country: US (occurrence: None)
  Receive Date: 20140331
  Receipt Date: 20140331
  Transmission Date: 20141002
  Serious: Yes (Other)
  Sender: FDA-Public Use
  Company Number: None

PATIENT
  Age: 34 Year
  Sex: Female

DRUGS (1)
  1. WELLBUTRIN [Suspect]

REACTIONS (3)
  - Nausea [None]
  - Diarrhoea [None]
  - Abdominal pain lower [None]
